FAERS Safety Report 8443406-6 (Version None)
Quarter: 2012Q2

REPORT INFORMATION
  Report Type: 
  Country: None (occurrence: None)
  Receive Date: 20120612
  Receipt Date: 20120612
  Transmission Date: 20120825
  Serious: Yes (Hospitalization)
  Sender: FDA-Public Use
  Company Number: None

PATIENT
  Age: 43 Year
  Sex: Male
  Weight: 45.3597 kg

DRUGS (5)
  1. KOGENATE [Suspect]
  2. KOGENATE [Suspect]
  3. KOGENATE [Suspect]
     Indication: HAEMORRHAGE
     Dosage: 4-6 UNITS/KG/HR CONTINUOUS INFUSIO IV DRIP
     Route: 041
     Dates: start: 20111010, end: 20111014
  4. KOGENATE [Suspect]
     Indication: HAEMORRHAGE
     Dosage: 4 UNITS/KG/HR CONTINUOUS INFUSIO IV DRIP
     Route: 041
     Dates: start: 20110627, end: 20110630
  5. ADVATE [Concomitant]

REACTIONS (3)
  - FACTOR VIII INHIBITION [None]
  - HAEMARTHROSIS [None]
  - HAEMORRHAGE [None]
